FAERS Safety Report 5916064-X (Version None)
Quarter: 2008Q4

REPORT INFORMATION
  Report Type: 
  Country: None (occurrence: None)
  Receive Date: 20081013
  Receipt Date: 20080929
  Transmission Date: 20090506
  Serious: Yes (Hospitalization)
  Sender: FDA-Public Use
  Company Number: US-ELI_LILLY_AND_COMPANY-US200809006404

PATIENT
  Sex: Female

DRUGS (1)
  1. PROZAC [Suspect]
     Indication: DEPRESSION
     Dosage: 40 MG, DAILY (1/D)
     Route: 065
     Dates: start: 19780901

REACTIONS (2)
  - ARTHRITIS [None]
  - STENT PLACEMENT [None]
